FAERS Safety Report 7282660-3 (Version None)
Quarter: 2011Q1

REPORT INFORMATION
  Report Type: 
  Country: None (occurrence: None)
  Receive Date: 20110209
  Receipt Date: 20110204
  Transmission Date: 20110831
  Serious: Yes (Other)
  Sender: FDA-Public Use
  Company Number: GB-JNJCH-2010029160

PATIENT
  Sex: Female

DRUGS (1)
  1. LISTERINE TOTAL CARE SENSITIVE [Suspect]
     Indication: DENTAL DISORDER PROPHYLAXIS
     Dosage: TEXT:UNSPECIFIED
     Route: 048

REACTIONS (5)
  - APPLICATION SITE ERYTHEMA [None]
  - APPLICATION SITE INFLAMMATION [None]
  - GINGIVAL PAIN [None]
  - APPLICATION SITE PAIN [None]
  - APPLICATION SITE VESICLES [None]
